FAERS Safety Report 7214343-X (Version None)
Quarter: 2011Q1

REPORT INFORMATION
  Report Type: 
  Country: None (occurrence: None)
  Receive Date: 20110107
  Receipt Date: 20101228
  Transmission Date: 20110831
  Serious: Yes (Other)
  Sender: FDA-Public Use
  Company Number: PHHY2010US66246

PATIENT
  Sex: Female

DRUGS (19)
  1. CALCIUM [Concomitant]
  2. LEVOTHROID [Concomitant]
  3. LACTACID [Concomitant]
     Dosage: 3000 UNIT
  4. CENTRUM SILVER [Concomitant]
  5. CALCIUM CITRATE [Concomitant]
  6. VITAMIN D [Concomitant]
     Dosage: 1000 IUS
  7. ZELNORM [Concomitant]
     Dosage: 6MG, ONCE OR TWICE A DAY
  8. RECLAST [Suspect]
     Dosage: 5MG/100ML
     Route: 042
     Dates: start: 20090101
  9. LEVOTHYROXINE [Concomitant]
     Dosage: 50MCG, 1 TABLET EVERY MORNING ON AN EMPTY STOMACH
  10. FIORICET [Concomitant]
     Indication: HEADACHE
     Dosage: 50MG
  11. MILK OF MAGNESIA [Concomitant]
     Indication: CONSTIPATION
     Dosage: 400 MG/5ML
  12. RECLAST [Suspect]
     Dosage: 5 MG ONCE A YEAR
     Dates: start: 20100811
  13. ASPIRIN [Concomitant]
     Dosage: 81MG, ONE TABLET ONCE A DAY
  14. MULTI-VITAMINS [Concomitant]
     Dosage: ONE TABLET, ONCE A DAY
  15. COLACE [Concomitant]
     Dosage: 100MG, TWICE DAILY
  16. VITAMIN D3 [Concomitant]
  17. RECLAST [Suspect]
     Indication: OSTEOPENIA
     Dosage: 5MG/100ML
     Route: 042
     Dates: start: 20080818
  18. BISPHOSPHONATES [Concomitant]
  19. SYNTHROID [Concomitant]
     Dosage: 0.05MG, DAILY

REACTIONS (9)
  - FATIGUE [None]
  - LUNG NEOPLASM [None]
  - HILAR LYMPHADENOPATHY [None]
  - DEAFNESS [None]
  - FLANK PAIN [None]
  - CHEST PAIN [None]
  - ARTHRALGIA [None]
  - MALAISE [None]
  - DEPRESSED MOOD [None]
